FAERS Safety Report 21745215 (Version 2)
Quarter: 2023Q1

REPORT INFORMATION
  Report Type: Spontaneous
  Country: AR (occurrence: AR)
  Receive Date: 20221219
  Receipt Date: 20230119
  Transmission Date: 20230418
  Serious: Yes (Other)
  Sender: FDA-Public Use
  Company Number: AR-PFIZER INC-PV202200120675

PATIENT
  Age: 53 Year
  Sex: Female

DRUGS (3)
  1. ENBREL [Suspect]
     Active Substance: ETANERCEPT
     Indication: Rheumatoid arthritis
     Dosage: 50 MG, WEEKLY
     Route: 065
     Dates: start: 20200824
  2. METHOTREXATE SODIUM [Concomitant]
     Active Substance: METHOTREXATE SODIUM
     Indication: Rheumatoid arthritis
     Dosage: 20 MG, WEEKLY
     Dates: start: 2014
  3. Acifol [Concomitant]
     Indication: Rheumatoid arthritis
     Dosage: 5 MG, MONTHLY
     Dates: start: 2014

REACTIONS (3)
  - Rheumatic disorder [Recovered/Resolved]
  - Skin papilloma [Unknown]
  - Lipoma [Unknown]

NARRATIVE: CASE EVENT DATE: 20221128
